FAERS Safety Report 6530009-3 (Version None)
Quarter: 2010Q1

REPORT INFORMATION
  Report Type: 
  Country: None (occurrence: None)
  Receive Date: 20100107
  Receipt Date: 20091230
  Transmission Date: 20100710
  Serious: Yes (Hospitalization)
  Sender: FDA-Public Use
  Company Number: GXKR2008GB05459

PATIENT
  Age: 62 Year
  Sex: Male

DRUGS (5)
  1. CETIRIZINE (NGX) [Suspect]
     Indication: PRURITUS
     Dosage: 10 MG, UNK
     Route: 065
     Dates: start: 20071115, end: 20071121
  2. ATARAX [Suspect]
     Dosage: 25 MG, QID
     Route: 065
     Dates: start: 20091107, end: 20091121
  3. ATARAX [Suspect]
     Dosage: 100 MG, UNK
     Route: 048
     Dates: start: 20071107, end: 20071121
  4. ACITRETIN [Suspect]
     Indication: KERATOSIS FOLLICULAR
     Dosage: 10 MG, UNK
     Route: 065
     Dates: start: 20071110, end: 20080108
  5. ZOPICLONE [Concomitant]
     Indication: INSOMNIA
     Dosage: 7.5 MG, UNK
     Route: 048
     Dates: start: 20071108, end: 20071127

REACTIONS (2)
  - DRUG INEFFECTIVE [None]
  - RASH GENERALISED [None]
